FAERS Safety Report 8021894-7 (Version None)
Quarter: 2012Q1

REPORT INFORMATION
  Report Type: 
  Country: None (occurrence: None)
  Receive Date: 20120104
  Receipt Date: 20111216
  Transmission Date: 20120608
  Serious: Yes (Hospitalization)
  Sender: FDA-Public Use
  Company Number: FR-SANOFI-AVENTIS-2011SA047591

PATIENT
  Age: 75 Year
  Sex: Male

DRUGS (4)
  1. DILTIAZEM HCL [Concomitant]
  2. BUMETANIDE [Concomitant]
  3. DIGOXIN [Concomitant]
  4. DANAZOL [Suspect]
     Route: 048
     Dates: start: 19920101, end: 20110330

REACTIONS (1)
  - PULMONARY FIBROSIS [None]
